FAERS Safety Report 12797361 (Version 1)
Quarter: 2016Q3

REPORT INFORMATION
  Report Type: Report from Study
  Country: US (occurrence: US)
  Receive Date: 20160929
  Receipt Date: 20160929
  Transmission Date: 20161109
  Serious: Yes (Other)
  Sender: FDA-Public Use
  Company Number: US-AMGEN-USASL2016133403

PATIENT

DRUGS (1)
  1. KYPROLIS [Suspect]
     Active Substance: CARFILZOMIB
     Indication: PRODUCT USED FOR UNKNOWN INDICATION
     Dosage: UNK
     Route: 065

REACTIONS (9)
  - Cough [Unknown]
  - Hypocalcaemia [Unknown]
  - Mental status changes [Unknown]
  - Hypomagnesaemia [Unknown]
  - Hypokalaemia [Unknown]
  - Dyspnoea [Unknown]
  - Pancytopenia [Unknown]
  - Hypertonic bladder [Unknown]
  - Fatigue [Unknown]

NARRATIVE: CASE EVENT DATE: 20151028
